FAERS Safety Report 21698898 (Version 6)
Quarter: 2023Q1

REPORT INFORMATION
  Report Type: Spontaneous
  Country: US (occurrence: US)
  Receive Date: 20221208
  Receipt Date: 20230217
  Transmission Date: 20230418
  Serious: No
  Sender: FDA-Public Use
  Company Number: US-PFIZER INC-202201346496

PATIENT
  Age: 14 Year
  Sex: Male
  Weight: 54.43 kg

DRUGS (1)
  1. GENOTROPIN [Suspect]
     Active Substance: SOMATROPIN
     Indication: Short stature
     Dosage: 2.2 MG, 1X/DAY (EVERY NIGHT BY INJECTION)

REACTIONS (5)
  - Device mechanical issue [Unknown]
  - Device difficult to use [Unknown]
  - Poor quality device used [Unknown]
  - Device delivery system issue [Unknown]
  - Incorrect dose administered by device [Unknown]
